FAERS Safety Report 20419329 (Version 1)
Quarter: 2022Q1

REPORT INFORMATION
  Report Type: Spontaneous
  Country: SE (occurrence: SE)
  Receive Date: 20220203
  Receipt Date: 20220203
  Transmission Date: 20220423
  Serious: Yes (Hospitalization, Other)
  Sender: FDA-Public Use
  Company Number: SE-CHEPLA-2022000509

PATIENT
  Sex: Female

DRUGS (1)
  1. ORLISTAT [Suspect]
     Active Substance: ORLISTAT
     Route: 065

REACTIONS (2)
  - Acute kidney injury [Unknown]
  - Nephrogenic anaemia [Unknown]
